FAERS Safety Report 4977059-6 (Version None)
Quarter: 2006Q2

REPORT INFORMATION
  Report Type: 
  Country: None (occurrence: None)
  Receive Date: 20060412
  Receipt Date: 20060331
  Transmission Date: 20061013
  Serious: Yes (Hospitalization)
  Sender: FDA-Public Use
  Company Number: 200610605BWH

PATIENT
  Age: 68 Year
  Sex: Male

DRUGS (9)
  1. SORAFENIB [Suspect]
     Indication: METASTATIC RENAL CELL CARCINOMA
     Dosage: ORAL; 400 MG, BID, ORAL
     Route: 048
     Dates: start: 20051101, end: 20051201
  2. SORAFENIB [Suspect]
     Indication: METASTATIC RENAL CELL CARCINOMA
     Dosage: ORAL; 400 MG, BID, ORAL
     Route: 048
     Dates: start: 20060101, end: 20060301
  3. SORAFENIB [Suspect]
     Indication: METASTATIC RENAL CELL CARCINOMA
     Dosage: ORAL; 400 MG, BID, ORAL
     Route: 048
     Dates: start: 20051201
  4. SORAFENIB [Suspect]
     Indication: METASTATIC RENAL CELL CARCINOMA
     Dosage: ORAL; 400 MG, BID, ORAL
     Route: 048
     Dates: start: 20060101
  5. SYNTHROID [Concomitant]
  6. ZYRTEC [Concomitant]
  7. ZOLOFT [Concomitant]
  8. PRILOSEC [Concomitant]
  9. BENADRYL ^WARNER-LAMBERT^ [Concomitant]

REACTIONS (11)
  - ALOPECIA [None]
  - ASTHENIA [None]
  - DEHYDRATION [None]
  - DYSPHAGIA [None]
  - FAECES DISCOLOURED [None]
  - GASTRIC HAEMORRHAGE [None]
  - HAEMATOCHEZIA [None]
  - HAEMOGLOBIN DECREASED [None]
  - HAEMORRHAGE [None]
  - MALNUTRITION [None]
  - RASH [None]
